FAERS Safety Report 7065529-9 (Version None)
Quarter: 2010Q4

REPORT INFORMATION
  Report Type: 
  Country: None (occurrence: None)
  Receive Date: 20101027
  Receipt Date: 20101020
  Transmission Date: 20110411
  Serious: No
  Sender: FDA-Public Use
  Company Number: US-B.I. PHARMACEUTICALS,INC./RIDGEFIELD-2010-BP-11782BP

PATIENT
  Sex: Female

DRUGS (1)
  1. CATAPRES [Suspect]
     Indication: HYPERTENSION
     Dosage: 0.9 MG
     Route: 048
     Dates: start: 20090101

REACTIONS (1)
  - BLOOD PRESSURE INADEQUATELY CONTROLLED [None]
